FAERS Safety Report 20880352 (Version 3)
Quarter: 2022Q4

REPORT INFORMATION
  Report Type: Spontaneous
  Country: US (occurrence: US)
  Receive Date: 20220526
  Receipt Date: 20221028
  Transmission Date: 20230113
  Serious: Yes (Other)
  Sender: FDA-Public Use
  Company Number: US-PFIZER INC-202200747632

PATIENT
  Age: 70 Year
  Sex: Female

DRUGS (2)
  1. PAXLOVID [Suspect]
     Active Substance: NIRMATRELVIR\RITONAVIR
     Indication: COVID-19 treatment
     Dosage: UNK
  2. BEBTELOVIMAB [Suspect]
     Active Substance: BEBTELOVIMAB
     Indication: COVID-19 treatment
     Dosage: UNK

REACTIONS (13)
  - Autoimmune disorder [Unknown]
  - Rash [Unknown]
  - Feeding disorder [Unknown]
  - Dysgeusia [Unknown]
  - Malaise [Unknown]
  - Reflux gastritis [Unknown]
  - Condition aggravated [Unknown]
  - Diarrhoea [Unknown]
  - Nausea [Not Recovered/Not Resolved]
  - Fatigue [Not Recovered/Not Resolved]
  - Dyspepsia [Unknown]
  - Weight decreased [Unknown]
  - Constipation [Unknown]
